FAERS Safety Report 15121434 (Version 6)
Quarter: 2018Q3

REPORT INFORMATION
  Report Type: Report from Study
  Country: None (occurrence: IL)
  Receive Date: 20180709
  Receipt Date: 20180905
  Transmission Date: 20181010
  Serious: Yes (Death, Hospitalization)
  Sender: FDA-Public Use
  Company Number: IL-ABBVIE-18S-082-2412500-00

PATIENT
  Age: 70 Year
  Sex: Male

DRUGS (3)
  1. DUODOPA [Suspect]
     Active Substance: CARBIDOPA\LEVODOPA
     Indication: PARKINSON^S DISEASE
     Dosage: DOSE ACCORDING TO THE TITRATION
     Route: 050
     Dates: start: 20180624
  2. DUODOPA [Suspect]
     Active Substance: CARBIDOPA\LEVODOPA
     Dosage: CMD? 9 ML, CFR? 1.5 ML/ HOUR, CER? 1 ML
     Route: 050
     Dates: start: 20180623
  3. DUODOPA [Suspect]
     Active Substance: CARBIDOPA\LEVODOPA
     Dosage: MD:9 ML CD:1.5ML/HR ED:1ML
     Route: 050
     Dates: start: 20180805

REACTIONS (8)
  - Gait disturbance [Not Recovered/Not Resolved]
  - Urinary tract infection [Not Recovered/Not Resolved]
  - Pneumonia [Fatal]
  - Dyskinesia [Unknown]
  - Pyrexia [Unknown]
  - Abdominal infection [Fatal]
  - Asthenia [Not Recovered/Not Resolved]
  - Urinary tract infection [Unknown]

NARRATIVE: CASE EVENT DATE: 2018
